FAERS Safety Report 10929749 (Version 2)
Quarter: 2015Q2

REPORT INFORMATION
  Report Type: Spontaneous
  Country: US (occurrence: US)
  Receive Date: 20150319
  Receipt Date: 20150603
  Transmission Date: 20150821
  Serious: Yes (Hospitalization, Other)
  Sender: FDA-Public Use
  Company Number: US-PFIZER INC-2015094115

PATIENT
  Age: 50 Year
  Sex: Female
  Weight: 51 kg

DRUGS (4)
  1. SORBITOL. [Suspect]
     Active Substance: SORBITOL
     Dosage: UNK
  2. MANNITOL. [Suspect]
     Active Substance: MANNITOL
     Dosage: UNK
  3. TUMS [Suspect]
     Active Substance: CALCIUM CARBONATE
     Dosage: UNK
  4. ADVIL [Suspect]
     Active Substance: IBUPROFEN
     Indication: PAIN
     Dosage: 200, 600, 800 AS NEEDED

REACTIONS (10)
  - Diarrhoea [Not Recovered/Not Resolved]
  - Abdominal distension [Not Recovered/Not Resolved]
  - Gastrointestinal disorder [Unknown]
  - Food allergy [Unknown]
  - Drug hypersensitivity [Not Recovered/Not Resolved]
  - Constipation [Not Recovered/Not Resolved]
  - Reaction to drug excipients [Not Recovered/Not Resolved]
  - Abdominal pain upper [Not Recovered/Not Resolved]
  - Product label issue [Not Recovered/Not Resolved]
  - Abdominal discomfort [Not Recovered/Not Resolved]

NARRATIVE: CASE EVENT DATE: 20140123
